FAERS Safety Report 12026154 (Version 1)
Quarter: 2016Q1

REPORT INFORMATION
  Report Type: Report from Study
  Country: US (occurrence: US)
  Receive Date: 20160206
  Receipt Date: 20160206
  Transmission Date: 20160526
  Serious: No
  Sender: FDA-Public Use
  Company Number: US-ABBVIE-15K-163-1483691-00

PATIENT
  Age: 64 Year
  Sex: Female

DRUGS (4)
  1. FOLIC ACID. [Concomitant]
     Active Substance: FOLIC ACID
     Indication: RHEUMATOID ARTHRITIS
     Route: 048
     Dates: start: 20131125
  2. METHOTREXATE [Concomitant]
     Active Substance: METHOTREXATE
     Indication: RHEUMATOID ARTHRITIS
     Route: 048
     Dates: start: 20131125
  3. ESTRADIOL. [Concomitant]
     Active Substance: ESTRADIOL
     Indication: HORMONE REPLACEMENT THERAPY
     Route: 048
     Dates: start: 20131125
  4. HUMIRA [Suspect]
     Active Substance: ADALIMUMAB
     Indication: RHEUMATOID ARTHRITIS
     Route: 058
     Dates: start: 20140108

REACTIONS (3)
  - Pruritus [Not Recovered/Not Resolved]
  - Eczema [Unknown]
  - Skin infection [Unknown]

NARRATIVE: CASE EVENT DATE: 20151014
